FAERS Safety Report 22040596 (Version 1)
Quarter: 2023Q1

REPORT INFORMATION
  Report Type: Spontaneous
  Country: BE (occurrence: BE)
  Receive Date: 20230227
  Receipt Date: 20230227
  Transmission Date: 20230418
  Serious: Yes (Other)
  Sender: FDA-Public Use
  Company Number: BE-002147023-NVSC2023BE022929

PATIENT
  Sex: Male

DRUGS (2)
  1. TACROLIMUS [Suspect]
     Active Substance: TACROLIMUS
     Indication: Product used for unknown indication
     Dosage: UNK
     Route: 065
  2. CYCLOSPORINE [Suspect]
     Active Substance: CYCLOSPORINE
     Indication: Product used for unknown indication
     Dosage: UNK
     Route: 065

REACTIONS (9)
  - Hypogammaglobulinaemia [Unknown]
  - Good syndrome [Unknown]
  - Thymoma [Unknown]
  - Aplasia pure red cell [Unknown]
  - Lymphocytosis [Unknown]
  - Malabsorption [Unknown]
  - Duodenitis [Unknown]
  - Diarrhoea [Unknown]
  - Drug ineffective [Unknown]
